FAERS Safety Report 19899300 (Version 1)
Quarter: 2021Q3

REPORT INFORMATION
  Report Type: Report from Study
  Country: US (occurrence: US)
  Receive Date: 20210930
  Receipt Date: 20210930
  Transmission Date: 20211014
  Serious: Yes (Other)
  Sender: FDA-Public Use
  Company Number: US-JNJFOC-20201211701

PATIENT
  Age: 22 Year
  Sex: Female
  Weight: 54.93 kg

DRUGS (1)
  1. INFLIXIMAB, RECOMBINANT [Suspect]
     Active Substance: INFLIXIMAB
     Indication: INFLAMMATORY BOWEL DISEASE
     Route: 042
     Dates: start: 20091116

REACTIONS (2)
  - Exposure during pregnancy [Recovered/Resolved]
  - Cholestasis of pregnancy [Not Recovered/Not Resolved]

NARRATIVE: CASE EVENT DATE: 202010
